FAERS Safety Report 8758464 (Version 3)
Quarter: 2012Q4

REPORT INFORMATION
  Report Type: 
  Country: IE (occurrence: IE)
  Receive Date: 20120823
  Receipt Date: 20121115
  Transmission Date: 20130627
  Serious: Yes (Hospitalization)
  Sender: FDA-Public Use
  Company Number: IE-ELI_LILLY_AND_COMPANY-IE201208005920

PATIENT
  Sex: Male

DRUGS (4)
  1. FORSTEO [Suspect]
     Indication: OSTEOPOROSIS
     Dosage: 20 ug, unknown
     Route: 058
     Dates: start: 20120719
  2. CITROL                             /00582602/ [Concomitant]
     Dosage: UNK, unknown
     Route: 065
  3. OMSIL [Concomitant]
     Dosage: UNK, unknown
     Route: 065
  4. UNIPHYLLIN [Concomitant]
     Dosage: UNK, unknown
     Route: 065

REACTIONS (3)
  - Herpes zoster [Unknown]
  - Corneal epithelium defect [Unknown]
  - Lower respiratory tract infection [Unknown]
